FAERS Safety Report 4868860-8 (Version None)
Quarter: 2005Q4

REPORT INFORMATION
  Report Type: 
  Country: None (occurrence: None)
  Receive Date: 20051223
  Receipt Date: 20051222
  Transmission Date: 20060501
  Serious: Yes (Hospitalization)
  Sender: FDA-Public Use
  Company Number: 2005-03-1676

PATIENT
  Age: 46 Year
  Sex: Male

DRUGS (2)
  1. PEG-INTRON [Suspect]
     Indication: HEPATITIS C
     Dosage: 120 MCG QWK SUBCUTANEOUS
     Route: 058
     Dates: start: 20030407, end: 20030917
  2. REBETOL [Suspect]
     Indication: HEPATITIS C
     Dosage: 800 MG QD ORAL
     Route: 048
     Dates: start: 20030407, end: 20030917

REACTIONS (5)
  - ABDOMINAL PAIN [None]
  - ABSCESS [None]
  - DRUG INTERACTION [None]
  - PYREXIA [None]
  - SUBDIAPHRAGMATIC ABSCESS [None]
